FAERS Safety Report 4641363-1 (Version None)
Quarter: 2005Q2

REPORT INFORMATION
  Report Type: 
  Country: None (occurrence: None)
  Receive Date: 20050420
  Receipt Date: 20050420
  Transmission Date: 20051028
  Serious: Yes (Hospitalization)
  Sender: FDA-Public Use
  Company Number: None

PATIENT
  Weight: 62.1428 kg

DRUGS (1)
  1. VANCOMYCIN [Suspect]
     Indication: ENDOCARDITIS
     Dosage: 1 GM IV QD
     Route: 042

REACTIONS (4)
  - DIARRHOEA [None]
  - NAUSEA [None]
  - RASH PRURITIC [None]
  - VOMITING [None]
